FAERS Safety Report 7543236-3 (Version None)
Quarter: 2011Q2

REPORT INFORMATION
  Report Type: 
  Country: None (occurrence: None)
  Receive Date: 20110613
  Receipt Date: 20110603
  Transmission Date: 20111010
  Serious: Yes (Other)
  Sender: FDA-Public Use
  Company Number: US-ASTRAZENECA-2010SE26500

PATIENT
  Age: 54 Year
  Sex: Female
  Weight: 90.7 kg

DRUGS (16)
  1. SEROQUEL XR [Suspect]
     Indication: BIPOLAR I DISORDER
     Route: 048
     Dates: start: 20100301, end: 20100501
  2. SEROQUEL XR [Suspect]
     Route: 048
     Dates: start: 20100501
  3. SEROQUEL XR [Suspect]
     Route: 048
     Dates: start: 20100501
  4. LITHIUM [Concomitant]
  5. HYDROXYZINE [Concomitant]
     Indication: MULTIPLE ALLERGIES
     Dosage: PRN
  6. SEROQUEL XR [Suspect]
     Indication: SCHIZOPHRENIFORM DISORDER
     Route: 048
     Dates: start: 20100301, end: 20100501
  7. SEROQUEL XR [Suspect]
     Route: 048
     Dates: start: 20100501
  8. SEROQUEL XR [Suspect]
     Route: 048
  9. SEROQUEL XR [Suspect]
     Route: 048
  10. SEROQUEL XR [Suspect]
     Route: 048
  11. LOVAZA [Concomitant]
  12. VITAMIN TAB [Concomitant]
  13. SEROQUEL XR [Suspect]
     Route: 048
     Dates: start: 20100501
  14. SEROQUEL XR [Suspect]
     Route: 048
  15. ZYPREXA [Concomitant]
     Dosage: PRN
  16. PHOSPHATITAL CHOLINE [Concomitant]

REACTIONS (7)
  - AMMONIA INCREASED [None]
  - DISTURBANCE IN ATTENTION [None]
  - HEPATIC CIRRHOSIS [None]
  - LIVER FUNCTION TEST ABNORMAL [None]
  - OBSESSIVE THOUGHTS [None]
  - JOINT SWELLING [None]
  - CONSTIPATION [None]
